FAERS Safety Report 5421540-2 (Version None)
Quarter: 2007Q3

REPORT INFORMATION
  Report Type: 
  Country: None (occurrence: None)
  Receive Date: 20070817
  Receipt Date: 20070807
  Transmission Date: 20080115
  Serious: Yes (Death, Hospitalization)
  Sender: FDA-Public Use
  Company Number: B0483345A

PATIENT
  Age: 31 Year
  Sex: Female

DRUGS (3)
  1. LAMIVUDINE [Suspect]
     Indication: HIV INFECTION
     Dates: start: 20040401
  2. STAVUDINE [Suspect]
     Indication: HIV INFECTION
     Dates: start: 20040401
  3. EFAVIRENZ [Concomitant]

REACTIONS (10)
  - ACUTE ABDOMEN [None]
  - CHOLELITHIASIS [None]
  - DEHYDRATION [None]
  - LACTIC ACIDOSIS [None]
  - MITOCHONDRIAL TOXICITY [None]
  - MULTI-ORGAN FAILURE [None]
  - POST PROCEDURAL COMPLICATION [None]
  - RENAL FAILURE ACUTE [None]
  - SOMNOLENCE [None]
  - TACHYPNOEA [None]
